FAERS Safety Report 8571210 (Version 4)
Quarter: 2013Q2

REPORT INFORMATION
  Report Type: Report from Study
  Country: US (occurrence: US)
  Receive Date: 20120521
  Receipt Date: 20130423
  Transmission Date: 20140414
  Serious: Yes (Hospitalization)
  Sender: FDA-Public Use
  Company Number: US-TEVA-320843USA

PATIENT
  Age: 54 Year
  Sex: Male
  Weight: 81 kg

DRUGS (11)
  1. TREANDA [Suspect]
     Indication: CHRONIC LYMPHOCYTIC LEUKAEMIA
     Route: 042
     Dates: start: 20110817, end: 20111019
  2. RITUXIMAB [Suspect]
     Indication: CHRONIC LYMPHOCYTIC LEUKAEMIA
     Route: 042
     Dates: start: 20110816, end: 20110816
  3. RITUXIMAB [Suspect]
     Route: 042
     Dates: start: 20110913, end: 20111018
  4. ABT-263 [Suspect]
     Indication: CHRONIC LYMPHOCYTIC LEUKAEMIA
     Dosage: ONCE DAILY FOR 3 DAYS OUT OF EACH 28 DAYS
     Route: 048
     Dates: start: 20110817, end: 20111018
  5. TOPIRAMATE [Concomitant]
     Indication: MIGRAINE
     Dosage: 50 MILLIGRAM DAILY;
     Dates: start: 2011
  6. OLMESARTAN MEDOXOMIL [Concomitant]
     Indication: HYPERTENSION
     Dosage: 12.5 MILLIGRAM DAILY;
     Route: 048
     Dates: start: 2011
  7. SIMVASTATIN [Concomitant]
     Indication: HYPERLIPIDAEMIA
     Dosage: 40 MILLIGRAM DAILY;
     Route: 048
     Dates: start: 20110331
  8. SUXATRIPTAN [Concomitant]
     Indication: MIGRAINE
     Dosage: AS REQUIRED
     Route: 048
     Dates: start: 20110331
  9. ALLOPURINOL [Concomitant]
     Indication: TUMOUR LYSIS SYNDROME
     Dosage: 300 MILLIGRAM DAILY;
     Dates: start: 20110815
  10. PARACETAMOL [Concomitant]
     Indication: PROPHYLAXIS
     Dosage: PRE-INFUSION
     Dates: start: 20110816
  11. DIPHENHYDRAMINE HYDROCHLORIDE [Concomitant]
     Indication: PROPHYLAXIS
     Dosage: PRE-INFUSION
     Dates: start: 20110816

REACTIONS (2)
  - Interstitial lung disease [Recovered/Resolved]
  - Interstitial lung disease [Recovered/Resolved]
